FAERS Safety Report 4426665-6 (Version None)
Quarter: 2004Q3

REPORT INFORMATION
  Report Type: 
  Country: None (occurrence: None)
  Receive Date: 20040811
  Receipt Date: 20040729
  Transmission Date: 20050211
  Serious: Yes (Death)
  Sender: FDA-Public Use
  Company Number: 2004IC000377

PATIENT
  Age: 59 Year
  Sex: Male

DRUGS (9)
  1. FLUOROURACIL [Suspect]
     Indication: PANCREATIC CARCINOMA
     Dosage: 500 MG; INTRA-ARTERIAL
     Route: 013
     Dates: start: 20040607, end: 20040614
  2. CISPLATIN [Suspect]
     Indication: PANCREATIC CARCINOMA
     Dosage: 20 MG; INTRA-ARTERIAL
     Route: 013
     Dates: start: 20040607, end: 20040614
  3. GEMZAR [Suspect]
     Indication: PANCREATIC CARCINOMA
     Dosage: 800 MG; INTRA-ARTERIAL
     Route: 013
     Dates: start: 20040607, end: 20040614
  4. HERBESSOR R [Concomitant]
  5. MUCOSOLVAN [Concomitant]
  6. DASEN [Concomitant]
  7. TOUGHMAC [Concomitant]
  8. MUCOSTA [Concomitant]
  9. MORPHINE SULFATE [Concomitant]

REACTIONS (3)
  - GENERAL PHYSICAL HEALTH DETERIORATION [None]
  - INTERSTITIAL LUNG DISEASE [None]
  - LYMPHANGIOSIS CARCINOMATOSA [None]
